FAERS Safety Report 6967987-4 (Version None)
Quarter: 2010Q3

REPORT INFORMATION
  Report Type: 
  Country: None (occurrence: None)
  Receive Date: 20100907
  Receipt Date: 20100831
  Transmission Date: 20110219
  Serious: Yes (Other)
  Sender: FDA-Public Use
  Company Number: A0873837A

PATIENT
  Sex: Female

DRUGS (6)
  1. TYKERB [Suspect]
     Dosage: 1250MG PER DAY
     Route: 048
     Dates: start: 20100511
  2. EFFEXOR [Concomitant]
     Route: 065
  3. OXYBUTYNIN [Concomitant]
     Route: 065
  4. PERINDOPRIL ERBUMINE [Concomitant]
     Route: 065
  5. DIOVOL [Concomitant]
     Route: 065
  6. XELODA [Concomitant]
     Dosage: 1200MG UNKNOWN
     Route: 048

REACTIONS (3)
  - DIARRHOEA [None]
  - MUCOSAL INFLAMMATION [None]
  - RASH [None]
